FAERS Safety Report 15707524 (Version 1)
Quarter: 2018Q4

REPORT INFORMATION
  Report Type: Spontaneous
  Country: US (occurrence: US)
  Receive Date: 20181211
  Receipt Date: 20181211
  Transmission Date: 20190205
  Serious: Yes (Other)
  Sender: FDA-Public Use
  Company Number: US-SCIEGEN PHARMACEUTICALS INC-2018SCISPO00786

PATIENT

DRUGS (3)
  1. IRBESARTAN TABLETS [Suspect]
     Active Substance: IRBESARTAN
     Dosage: 300 MG, QD
     Route: 065
     Dates: start: 2018, end: 20180613
  2. IRBESARTAN TABLETS [Suspect]
     Active Substance: IRBESARTAN
     Indication: HYPERTENSION
     Dosage: 75 MG, QD
     Route: 065
     Dates: start: 20180423, end: 2018
  3. IRBESARTAN TABLETS [Suspect]
     Active Substance: IRBESARTAN
     Dosage: 150 MG, QD
     Route: 065
     Dates: start: 2018, end: 2018

REACTIONS (2)
  - Metamorphopsia [Not Recovered/Not Resolved]
  - Drug ineffective [Unknown]
